FAERS Safety Report 6994239-9 (Version None)
Quarter: 2010Q3

REPORT INFORMATION
  Report Type: 
  Country: None (occurrence: None)
  Receive Date: 20100917
  Receipt Date: 20100517
  Transmission Date: 20110219
  Serious: Yes (Other)
  Sender: FDA-Public Use
  Company Number: US-ASTRAZENECA-2008UW23745

PATIENT
  Sex: Female

DRUGS (3)
  1. SEROQUEL [Suspect]
     Dosage: 100-600 MG
     Route: 048
     Dates: start: 20061006
  2. ENABLEX [Concomitant]
     Route: 048
     Dates: start: 20061023
  3. EFFEXOR XR [Concomitant]
     Route: 048
     Dates: start: 20061116

REACTIONS (3)
  - DIABETES MELLITUS [None]
  - KETOACIDOSIS [None]
  - PANCREATITIS [None]
